FAERS Safety Report 6163066-7 (Version None)
Quarter: 2009Q2

REPORT INFORMATION
  Report Type: 
  Country: None (occurrence: None)
  Receive Date: 20090422
  Receipt Date: 20090416
  Transmission Date: 20091009
  Serious: Yes (Hospitalization)
  Sender: FDA-Public Use
  Company Number: NL-BAXTER-2009BH006006

PATIENT
  Age: 15 Year
  Sex: Female
  Weight: 75 kg

DRUGS (9)
  1. SEVOFLURANE [Suspect]
     Indication: DRUG USE FOR UNKNOWN INDICATION
     Dosage: DOSERING NIET BEKEND; TIJDENS INLEIDING INGREEP
     Route: 065
     Dates: start: 20081218
  2. GINKGO BILOBA [Suspect]
     Indication: DRUG USE FOR UNKNOWN INDICATION
     Dates: start: 20080901, end: 20081219
  3. MELOXICAM [Suspect]
     Indication: DRUG USE FOR UNKNOWN INDICATION
     Dosage: 15MG
     Route: 048
     Dates: start: 20081218
  4. SUFENTANIL [Suspect]
     Indication: DRUG USE FOR UNKNOWN INDICATION
     Dosage: DOSERING NIET BEKEND; I.V.
     Route: 042
     Dates: start: 20081218
  5. VOLTAREN [Suspect]
     Indication: POSTOPERATIVE ANALGESIA
     Dosage: STERKTE, DOSERING EN TOEDIENINGSVORM ONBEKEND
     Route: 065
     Dates: start: 20081218
  6. PANTOZOL [Suspect]
     Indication: DRUG USE FOR UNKNOWN INDICATION
     Dosage: 20MG
     Route: 048
     Dates: start: 20081218
  7. METHYLATROPINE NITRATE [Suspect]
     Indication: DRUG USE FOR UNKNOWN INDICATION
     Dosage: DOSERING NIET BEKEND; I.V.
     Route: 042
     Dates: start: 20081218
  8. PARACETAMOL [Suspect]
     Indication: DRUG USE FOR UNKNOWN INDICATION
     Dosage: 1000MG
     Route: 048
     Dates: start: 20081218
  9. GLYCOSAMINOGLYCAN [Concomitant]
     Route: 048

REACTIONS (2)
  - RENAL FAILURE [None]
  - TUBULOINTERSTITIAL NEPHRITIS [None]
